FAERS Safety Report 16627535 (Version 1)
Quarter: 2019Q3

REPORT INFORMATION
  Report Type: Spontaneous
  Country: JP (occurrence: JP)
  Receive Date: 20190724
  Receipt Date: 20190724
  Transmission Date: 20191004
  Serious: Yes (Hospitalization, Other)
  Sender: FDA-Public Use
  Company Number: JP-BRISTOL-MYERS SQUIBB COMPANY-BMS-2019-067947

PATIENT
  Age: 89 Year
  Sex: Female
  Weight: 37 kg

DRUGS (1)
  1. ELIQUIS [Suspect]
     Active Substance: APIXABAN
     Indication: CEREBROVASCULAR ACCIDENT PROPHYLAXIS
     Dosage: UNK
     Route: 048

REACTIONS (5)
  - Pneumonia [Unknown]
  - Diverticulum intestinal haemorrhagic [Recovering/Resolving]
  - Multiple sclerosis [Unknown]
  - Cardiac failure [Unknown]
  - Haemoglobin decreased [Recovering/Resolving]
